FAERS Safety Report 9790420 (Version 1)
Quarter: 2013Q4

REPORT INFORMATION
  Report Type: Spontaneous
  Country: JP (occurrence: JP)
  Receive Date: 20131231
  Receipt Date: 20131231
  Transmission Date: 20140711
  Serious: Yes (Death)
  Sender: FDA-Public Use
  Company Number: JP-MALLINCKRODT-T201305189

PATIENT
  Age: 90 Year
  Sex: Female
  Weight: 32.5 kg

DRUGS (8)
  1. METHADONE [Suspect]
     Indication: CANCER PAIN
     Dosage: 5 MG, (10 MG DAILY DOSE)
     Route: 048
     Dates: start: 20130724, end: 20130730
  2. METHADONE [Suspect]
     Dosage: 5 MG, (15 MG DAILY DOSE)
     Route: 048
     Dates: start: 20130731, end: 20130809
  3. OXINORM [Concomitant]
     Dosage: 2.5 MG, PRN
     Route: 048
     Dates: start: 20130723
  4. FENTOS [Concomitant]
     Dosage: 2 MG, UNK
     Route: 062
     Dates: start: 20130709, end: 20130810
  5. CELECOX [Concomitant]
     Dosage: 200 MG, UNK
     Route: 048
     Dates: start: 20130710, end: 20130809
  6. CRAVIT [Concomitant]
     Indication: LYMPHANGITIS
     Dosage: 500 MG, UNK
     Route: 048
     Dates: start: 20130710, end: 20130805
  7. PURSENNID [Concomitant]
     Dosage: 12 MG, PRN
     Route: 048
  8. NOVAMIN [Concomitant]
     Dosage: 10 MG, UNK
     Route: 048
     Dates: start: 20130724, end: 20130731

REACTIONS (1)
  - Breast cancer [Fatal]
